FAERS Safety Report 8901660 (Version 1)
Quarter: 2012Q4

REPORT INFORMATION
  Report Type: Spontaneous
  Country: US (occurrence: None)
  Receive Date: 20121108
  Receipt Date: 20121108
  Transmission Date: 20130627
  Serious: Yes (Hospitalization)
  Sender: FDA-Public Use
  Company Number: None

PATIENT
  Age: 42 Year
  Sex: Male
  Weight: 98.4 kg

DRUGS (1)
  1. CEPHALEXIN [Suspect]
     Dosage: 500 MG  BID  PO
     Route: 048
     Dates: start: 20110415, end: 20110419

REACTIONS (7)
  - Agitation [None]
  - Mania [None]
  - Rash pruritic [None]
  - Erythema [None]
  - Somnolence [None]
  - Rash papular [None]
  - Drug hypersensitivity [None]
